FAERS Safety Report 4609115-6 (Version None)
Quarter: 2005Q1

REPORT INFORMATION
  Report Type: 
  Country: None (occurrence: None)
  Receive Date: 20050311
  Receipt Date: 20050301
  Transmission Date: 20050727
  Serious: Yes (Other)
  Sender: FDA-Public Use
  Company Number: BDI-007001

PATIENT
  Sex: Female

DRUGS (2)
  1. ISOVUE-250 [Suspect]
     Indication: NEPHROLITHIASIS
     Dosage: 100 ML ONCE IV
     Route: 042
  2. ISOVUE-250 [Suspect]
     Indication: UROGRAPHY
     Dosage: 100 ML ONCE IV
     Route: 042

REACTIONS (2)
  - CEREBROVASCULAR ACCIDENT [None]
  - MONOPLEGIA [None]
